FAERS Safety Report 8244677-1 (Version None)
Quarter: 2012Q1

REPORT INFORMATION
  Report Type: 
  Country: None (occurrence: None)
  Receive Date: 20120329
  Receipt Date: 20120116
  Transmission Date: 20120608
  Serious: No
  Sender: FDA-Public Use
  Company Number: US-MYLANLABS-2012S1001297

PATIENT
  Sex: Female

DRUGS (1)
  1. FENTANYL-100 [Suspect]
     Indication: PAIN IN EXTREMITY
     Dosage: CHANGED Q48H
     Route: 062

REACTIONS (4)
  - MUSCLE SPASMS [None]
  - DRUG WITHDRAWAL SYNDROME [None]
  - DRUG EFFECT DECREASED [None]
  - PAIN IN EXTREMITY [None]
